FAERS Safety Report 8932503 (Version 1)
Quarter: 2012Q4

REPORT INFORMATION
  Report Type: Spontaneous
  Country: US (occurrence: None)
  Receive Date: 20121126
  Receipt Date: 20121126
  Transmission Date: 20130627
  Serious: Yes (Disabling, Other)
  Sender: FDA-Public Use
  Company Number: None

PATIENT
  Sex: Female
  Weight: 74.84 kg

DRUGS (1)
  1. LEVAQUIN [Suspect]
     Dosage: 500   1/x/day   Oral
     Route: 048
     Dates: start: 1999, end: 2010

REACTIONS (1)
  - Goitre [None]
